FAERS Safety Report 13601869 (Version 1)
Quarter: 2017Q2

REPORT INFORMATION
  Report Type: Other
  Country: US (occurrence: US)
  Receive Date: 20170601
  Receipt Date: 20170601
  Transmission Date: 20170830
  Serious: Yes (Hospitalization)
  Sender: FDA-Public Use
  Company Number: US-VELOXIS PHARMACEUTICALS-2021450

PATIENT
  Age: 67 Year
  Sex: Male

DRUGS (13)
  1. ENVARSUS XR [Suspect]
     Active Substance: TACROLIMUS
     Indication: PRODUCT USED FOR UNKNOWN INDICATION
  2. CHOLECALCIFEROL [Concomitant]
     Active Substance: CHOLECALCIFEROL
  3. METOPROLOL. [Concomitant]
     Active Substance: METOPROLOL
  4. DABIGATRAN [Interacting]
     Active Substance: DABIGATRAN
     Route: 048
  5. ALENDRONATE [Concomitant]
     Active Substance: ALENDRONATE SODIUM
  6. COENZYME Q10 [Concomitant]
     Active Substance: UBIDECARENONE
  7. TRAZODONE [Concomitant]
     Active Substance: TRAZODONE HYDROCHLORIDE
  8. ATORVASTATIN [Concomitant]
     Active Substance: ATORVASTATIN
  9. SOTALOL. [Concomitant]
     Active Substance: SOTALOL
  10. DUTASTERIDE. [Concomitant]
     Active Substance: DUTASTERIDE
  11. MYCOPHENOLATE MOFETIL. [Concomitant]
     Active Substance: MYCOPHENOLATE MOFETIL
  12. PREDNISONE. [Concomitant]
     Active Substance: PREDNISONE
  13. TAMSULOSIN [Concomitant]
     Active Substance: TAMSULOSIN

REACTIONS (2)
  - Subdural haematoma [Recovered/Resolved]
  - Drug interaction [Recovered/Resolved]
